FAERS Safety Report 20500577 (Version 1)
Quarter: 2022Q1

REPORT INFORMATION
  Report Type: Spontaneous
  Country: US (occurrence: US)
  Receive Date: 20220222
  Receipt Date: 20220222
  Transmission Date: 20220423
  Serious: No
  Sender: FDA-Public Use
  Company Number: US-SA-SAC20220217001228

PATIENT
  Age: 26 Year
  Sex: Male

DRUGS (2)
  1. DUPIXENT [Suspect]
     Active Substance: DUPILUMAB
     Indication: Eczema
     Dosage: UNK, TOTAL
     Route: 058
     Dates: start: 20220203, end: 20220203
  2. DUPIXENT [Suspect]
     Active Substance: DUPILUMAB
     Indication: Staphylococcal infection
     Dosage: UNK, QOW
     Route: 058

REACTIONS (3)
  - Dry skin [Unknown]
  - Product use in unapproved indication [Unknown]
  - Product prescribing issue [Unknown]

NARRATIVE: CASE EVENT DATE: 20220203
